FAERS Safety Report 18284677 (Version 1)
Quarter: 2020Q3

REPORT INFORMATION
  Report Type: Spontaneous
  Country: US (occurrence: US)
  Receive Date: 20200918
  Receipt Date: 20200918
  Transmission Date: 20201103
  Serious: No
  Sender: FDA-Public Use
  Company Number: US-PFIZER INC-2020355123

PATIENT
  Age: 58 Year
  Sex: Female
  Weight: 75.3 kg

DRUGS (3)
  1. DUAVEE [Suspect]
     Active Substance: BAZEDOXIFENE ACETATE\ESTROGENS, CONJUGATED
     Dosage: UNK, ALTERNATE DAY [EVERY OTHER DAY]
     Route: 048
  2. DUAVEE [Suspect]
     Active Substance: BAZEDOXIFENE ACETATE\ESTROGENS, CONJUGATED
     Indication: MENOPAUSE
     Dosage: 20 MG [20 MG EVERY FIVE DAYS BY MOUTH[
     Route: 048
  3. DUAVEE [Suspect]
     Active Substance: BAZEDOXIFENE ACETATE\ESTROGENS, CONJUGATED
     Indication: MENOPAUSAL DISORDER
     Dosage: 20 MG, DAILY
     Route: 048

REACTIONS (5)
  - Restless legs syndrome [Unknown]
  - Insomnia [Unknown]
  - Irregular sleep phase [Not Recovered/Not Resolved]
  - Hyperhidrosis [Unknown]
  - Intentional product misuse [Unknown]
